FAERS Safety Report 23706223 (Version 1)
Quarter: 2024Q2

REPORT INFORMATION
  Report Type: Spontaneous
  Country: US (occurrence: None)
  Receive Date: 20240403
  Receipt Date: 20240403
  Transmission Date: 20240716
  Serious: Yes (Disabling)
  Sender: FDA-Public Use
  Company Number: None

PATIENT
  Age: 77 Year
  Sex: Female
  Weight: 65.25 kg

DRUGS (7)
  1. TRULICITY [Suspect]
     Active Substance: DULAGLUTIDE
     Indication: Type 2 diabetes mellitus
     Dosage: 1 INJECTION ONCE A WEEK SUBCUTANEOUS
     Route: 058
     Dates: start: 20230621, end: 20240327
  2. Turmeric [Concomitant]
  3. cinnamon [Concomitant]
  4. VITAMIN D [Concomitant]
     Active Substance: VITAMIN D NOS
  5. VITAMIN C [Concomitant]
     Active Substance: ASCORBIC ACID
  6. FOLIC ACID [Concomitant]
     Active Substance: FOLIC ACID
  7. SELENIUM [Concomitant]

REACTIONS (5)
  - Dehydration [None]
  - Diarrhoea [None]
  - Gingival bleeding [None]
  - Stomatitis [None]
  - Oral candidiasis [None]

NARRATIVE: CASE EVENT DATE: 20230930
